FAERS Safety Report 18793896 (Version 1)
Quarter: 2021Q1

REPORT INFORMATION
  Report Type: Spontaneous
  Country: US (occurrence: US)
  Receive Date: 20210126
  Receipt Date: 20210126
  Transmission Date: 20210419
  Serious: Yes (Other)
  Sender: FDA-Public Use
  Company Number: None

PATIENT
  Sex: Male

DRUGS (1)
  1. MEDICALLY MINDED HAND SANITIZER [Suspect]
     Active Substance: ALCOHOL

REACTIONS (2)
  - Rash [None]
  - Product odour abnormal [None]

NARRATIVE: CASE EVENT DATE: 20200821
